FAERS Safety Report 11268227 (Version 1)
Quarter: 2015Q3

REPORT INFORMATION
  Report Type: Spontaneous
  Country: GB (occurrence: GB)
  Receive Date: 20150714
  Receipt Date: 20150714
  Transmission Date: 20151125
  Serious: Yes (Other)
  Sender: FDA-Public Use
  Company Number: GB-AMGEN-GBRSP2015067892

PATIENT
  Sex: Female
  Weight: 45.8 kg

DRUGS (1)
  1. PROLIA [Suspect]
     Active Substance: DENOSUMAB
     Indication: OSTEOPOROSIS
     Dosage: 60 MG, UNK
     Route: 065
     Dates: start: 20141104

REACTIONS (7)
  - Eye irritation [Unknown]
  - Memory impairment [Unknown]
  - Ocular hyperaemia [Unknown]
  - Insomnia [Unknown]
  - Dry eye [Unknown]
  - Emotional disorder [Unknown]
  - Hypoaesthesia [Unknown]

NARRATIVE: CASE EVENT DATE: 20141104
